FAERS Safety Report 8338504-1 (Version None)
Quarter: 2012Q2

REPORT INFORMATION
  Report Type: 
  Country: None (occurrence: None)
  Receive Date: 20120504
  Receipt Date: 20120426
  Transmission Date: 20120825
  Serious: Yes (Hospitalization)
  Sender: FDA-Public Use
  Company Number: US-ELI_LILLY_AND_COMPANY-US201204009786

PATIENT
  Age: 28 Year
  Sex: Female
  Weight: 71.202 kg

DRUGS (3)
  1. ADCIRCA [Suspect]
  2. REMODULIN [Concomitant]
     Indication: PULMONARY ARTERIAL HYPERTENSION
     Dosage: 110 DF, OTHER
  3. TRACLEER [Concomitant]

REACTIONS (1)
  - HAEMOPTYSIS [None]
